FAERS Safety Report 25198651 (Version 1)
Quarter: 2025Q2

REPORT INFORMATION
  Report Type: Report from Study
  Country: US (occurrence: US)
  Receive Date: 20250415
  Receipt Date: 20250415
  Transmission Date: 20250716
  Serious: Yes (Other)
  Sender: ALEXION PHARMACEUTICALS
  Company Number: US-AstraZeneca-CH-00845612A

PATIENT

DRUGS (1)
  1. OSIMERTINIB [Suspect]
     Active Substance: OSIMERTINIB
     Indication: Non-small cell lung cancer
     Dosage: 80 MILLIGRAM, QD

REACTIONS (7)
  - Cataract [Unknown]
  - Hypotension [Unknown]
  - Rash [Unknown]
  - Faeces hard [Unknown]
  - Pain [Unknown]
  - Respiratory disorder [Unknown]
  - Blood sodium decreased [Unknown]
